FAERS Safety Report 6611716-0 (Version None)
Quarter: 2010Q1

REPORT INFORMATION
  Report Type: 
  Country: None (occurrence: None)
  Receive Date: 20100303
  Receipt Date: 20100225
  Transmission Date: 20100710
  Serious: Yes (Other)
  Sender: FDA-Public Use
  Company Number: US-RB-022056-09

PATIENT
  Age: 24 Year
  Sex: Female

DRUGS (3)
  1. SUBUTEX [Suspect]
     Dosage: 2 MG EVERY OTHER DAY
     Route: 060
     Dates: start: 20090101, end: 20091206
  2. SUBOXONE [Suspect]
     Dosage: DOSING DETAILS UNKNOWN
     Route: 065
     Dates: end: 20090101
  3. SUBOXONE [Suspect]
     Route: 060
     Dates: start: 20091201, end: 20100221

REACTIONS (3)
  - DRUG EXPOSURE DURING PREGNANCY [None]
  - PREMATURE SEPARATION OF PLACENTA [None]
  - STILLBIRTH [None]
